FAERS Safety Report 19568667 (Version 1)
Quarter: 2021Q3

REPORT INFORMATION
  Report Type: Spontaneous
  Country: US (occurrence: US)
  Receive Date: 20210714
  Receipt Date: 20210714
  Transmission Date: 20211014
  Serious: No
  Sender: FDA-Public Use
  Company Number: US-009507513-2107USA000256

PATIENT
  Age: 77 Year
  Sex: Female
  Weight: 72.56 kg

DRUGS (2)
  1. KEYTRUDA [Suspect]
     Active Substance: PEMBROLIZUMAB
     Indication: ANGIOSARCOMA
     Dosage: 1 INFUSION EVERY 3 WEEKS
     Route: 042
     Dates: start: 202104, end: 202105
  2. TAXOL [Concomitant]
     Active Substance: PACLITAXEL

REACTIONS (3)
  - Rash pruritic [Not Recovered/Not Resolved]
  - Product use in unapproved indication [Unknown]
  - Product formulation issue [Unknown]

NARRATIVE: CASE EVENT DATE: 202104
